FAERS Safety Report 5245313-9 (Version None)
Quarter: 2007Q1

REPORT INFORMATION
  Report Type: 
  Country: None (occurrence: None)
  Receive Date: 20070223
  Receipt Date: 20070215
  Transmission Date: 20070707
  Serious: Yes (Hospitalization)
  Sender: FDA-Public Use
  Company Number: JP-JPN-A200700472

PATIENT
  Age: 14 Year
  Sex: Male
  Weight: 52 kg

DRUGS (2)
  1. PAXIL [Suspect]
     Indication: PANIC DISORDER
     Route: 048
     Dates: start: 20061205, end: 20061221
  2. TEGRETOL [Suspect]
     Indication: EPILEPSY
     Dosage: 400MG PER DAY
     Route: 048
     Dates: start: 20060329

REACTIONS (5)
  - ACCIDENTAL OVERDOSE [None]
  - ANTICONVULSANT DRUG LEVEL DECREASED [None]
  - CONVULSION [None]
  - DRUG INTERACTION [None]
  - STATUS EPILEPTICUS [None]
